FAERS Safety Report 15250444 (Version 1)
Quarter: 2018Q3

REPORT INFORMATION
  Report Type: Spontaneous
  Country: US (occurrence: US)
  Receive Date: 20180807
  Receipt Date: 20180807
  Transmission Date: 20181010
  Serious: Yes (Other)
  Sender: FDA-Public Use
  Company Number: US-PFIZER INC-2018312658

PATIENT
  Age: 1 Year
  Sex: Female

DRUGS (2)
  1. TOCILIZUMAB. [Suspect]
     Active Substance: TOCILIZUMAB
     Indication: JANUS KINASE 2 MUTATION
     Dosage: UNK
     Dates: start: 201706, end: 201803
  2. SIROLIMUS. [Suspect]
     Active Substance: SIROLIMUS
     Indication: JANUS KINASE 2 MUTATION
     Dosage: UNK
     Dates: start: 201705, end: 201803

REACTIONS (5)
  - Product use issue [Unknown]
  - Haematochezia [Recovered/Resolved]
  - Product use in unapproved indication [Unknown]
  - Inflammatory marker increased [Unknown]
  - Drug ineffective [Unknown]

NARRATIVE: CASE EVENT DATE: 201802
